FAERS Safety Report 9189203 (Version 1)
Quarter: 2013Q1

REPORT INFORMATION
  Report Type: Spontaneous
  Country: US (occurrence: None)
  Receive Date: 20130321
  Receipt Date: 20130321
  Transmission Date: 20140127
  Serious: Yes (Hospitalization)
  Sender: FDA-Public Use
  Company Number: None

PATIENT
  Sex: Male
  Weight: 8.88 kg

DRUGS (1)
  1. LASPARAGINASE [Suspect]
     Dates: end: 20130314

REACTIONS (2)
  - Blood triglycerides increased [None]
  - Toxicity to various agents [None]
